FAERS Safety Report 9664344 (Version 1)
Quarter: 2013Q4

REPORT INFORMATION
  Report Type: Spontaneous
  Country: GB (occurrence: GB)
  Receive Date: 20131101
  Receipt Date: 20131101
  Transmission Date: 20140711
  Serious: Yes (Life-Threatening, Hospitalization, Other)
  Sender: FDA-Public Use
  Company Number: GB-ACTAVIS-2013-20094

PATIENT
  Age: 84 Year
  Sex: Female

DRUGS (11)
  1. ACYCLOVIR (UNKNOWN) [Suspect]
     Indication: HERPES ZOSTER
     Dosage: 200 MG, FIVE TIMES A DAY
     Route: 048
     Dates: start: 20130913, end: 20130916
  2. OMEPRAZOLE [Concomitant]
     Indication: PRODUCT USED FOR UNKNOWN INDICATION
     Dosage: 20 MG, DAILY
     Route: 065
  3. PREDNISOLONE [Concomitant]
     Indication: POLYMYALGIA RHEUMATICA
     Dosage: 20 MG, DAILY
     Route: 065
  4. ASPIRIN [Concomitant]
     Indication: PRODUCT USED FOR UNKNOWN INDICATION
     Dosage: 75 MG, DAILY
     Route: 065
  5. BISOPROLOL [Concomitant]
     Indication: PRODUCT USED FOR UNKNOWN INDICATION
     Dosage: 5 MG, DAILY
     Route: 065
  6. CALCICHEW D3 [Concomitant]
     Indication: PRODUCT USED FOR UNKNOWN INDICATION
     Dosage: 2 DF, DAILY
     Route: 065
  7. CINNARIZINE [Concomitant]
     Indication: PRODUCT USED FOR UNKNOWN INDICATION
     Dosage: 15 MG, TID
     Route: 065
  8. EXEMESTANE [Concomitant]
     Indication: PRODUCT USED FOR UNKNOWN INDICATION
     Dosage: 25 MG, DAILY
     Route: 065
  9. SIMVASTATIN [Concomitant]
     Indication: PRODUCT USED FOR UNKNOWN INDICATION
     Dosage: 20 MG, DAILY; AT NIGHT
     Route: 065
  10. FERROUS FUMARATE [Concomitant]
     Indication: PRODUCT USED FOR UNKNOWN INDICATION
     Dosage: 210 MG, BID
     Route: 065
  11. HYDROXOCOBALAMIN [Concomitant]
     Indication: PRODUCT USED FOR UNKNOWN INDICATION
     Dosage: 1 MG, EVERY 3 MONTHS
     Route: 065

REACTIONS (3)
  - Herpes zoster [Unknown]
  - Condition aggravated [Unknown]
  - Treatment failure [Recovered/Resolved]
